FAERS Safety Report 20098238 (Version 1)
Quarter: 2021Q4

REPORT INFORMATION
  Report Type: Spontaneous
  Country: US (occurrence: US)
  Receive Date: 20211122
  Receipt Date: 20211122
  Transmission Date: 20220303
  Serious: Yes (Other)
  Sender: FDA-Public Use
  Company Number: US-BAYER-2021A250110

PATIENT
  Age: 30 Year
  Sex: Female

DRUGS (1)
  1. MIRENA [Suspect]
     Active Substance: LEVONORGESTREL
     Dosage: 20?G/DAY
     Route: 015
     Dates: start: 20070801, end: 200802

REACTIONS (3)
  - Abnormal weight gain [None]
  - Genital haemorrhage [None]
  - Female genital tract fistula [None]

NARRATIVE: CASE EVENT DATE: 20070801
